FAERS Safety Report 17519168 (Version 1)
Quarter: 2020Q1

REPORT INFORMATION
  Report Type: Spontaneous
  Country: CA (occurrence: CA)
  Receive Date: 20200310
  Receipt Date: 20200310
  Transmission Date: 20200409
  Serious: Yes (Hospitalization)
  Sender: FDA-Public Use
  Company Number: CA-TEVA-2020-CA-1198690

PATIENT
  Age: 68 Year
  Sex: Male
  Weight: 66 kg

DRUGS (15)
  1. BISOPROLOL [Concomitant]
     Active Substance: BISOPROLOL
  2. PREDNISONE. [Concomitant]
     Active Substance: PREDNISONE
  3. DICLOFENAC [Concomitant]
     Active Substance: DICLOFENAC
  4. ACETYLSALICYLIC ACID [Concomitant]
     Active Substance: ASPIRIN
  5. FORTEO [Concomitant]
     Active Substance: TERIPARATIDE
  6. MAVIK [Concomitant]
     Active Substance: TRANDOLAPRIL
  7. FOLIC ACID. [Concomitant]
     Active Substance: FOLIC ACID
  8. VITAMIN D [Concomitant]
     Active Substance: VITAMIN D NOS
  9. SULFAMETHOXAZOLE/TRIMETHOPRIM [Suspect]
     Active Substance: SULFAMETHOXAZOLE\TRIMETHOPRIM
     Indication: ANTIFUNGAL PROPHYLAXIS
     Dosage: 800 MG
     Route: 048
  10. PANTOPRAZOLE [Concomitant]
     Active Substance: PANTOPRAZOLE
  11. ROSUVASTATIN. [Concomitant]
     Active Substance: ROSUVASTATIN
  12. METHOTREXATE. [Interacting]
     Active Substance: METHOTREXATE
     Indication: RHEUMATOID ARTHRITIS
     Route: 048
  13. CALCIUM [Concomitant]
     Active Substance: CALCIUM
  14. SULFASALAZINE. [Concomitant]
     Active Substance: SULFASALAZINE
  15. FUROSEMIDE. [Concomitant]
     Active Substance: FUROSEMIDE

REACTIONS (5)
  - Renal failure [Recovered/Resolved]
  - Potentiating drug interaction [Recovered/Resolved]
  - Vomiting [Recovered/Resolved]
  - Dysgeusia [Recovered/Resolved]
  - Thrombocytopenia [Recovered/Resolved]
